FAERS Safety Report 6803963-X (Version None)
Quarter: 2010Q2

REPORT INFORMATION
  Report Type: 
  Country: None (occurrence: None)
  Receive Date: 20100628
  Receipt Date: 20060711
  Transmission Date: 20101027
  Serious: Yes (Other)
  Sender: FDA-Public Use
  Company Number: US-PFIZER INC-2006077604

PATIENT
  Sex: Male
  Weight: 76.2 kg

DRUGS (9)
  1. SU-011,248 [Suspect]
     Indication: RENAL CELL CARCINOMA
     Route: 048
     Dates: start: 20060602
  2. NORVASC [Concomitant]
     Route: 065
  3. LIPITOR [Concomitant]
     Route: 065
  4. ASPIRIN [Concomitant]
     Route: 065
  5. CELEBREX [Concomitant]
     Route: 065
  6. LEXAPRO [Concomitant]
     Route: 065
  7. ZYRTEC [Concomitant]
     Route: 065
  8. FUROSEMIDE [Concomitant]
     Route: 065
  9. TOPROL-XL [Concomitant]
     Route: 065

REACTIONS (6)
  - BLOOD PRESSURE FLUCTUATION [None]
  - DISORIENTATION [None]
  - DYSGEUSIA [None]
  - HYPERTENSION [None]
  - IMMUNE SYSTEM DISORDER [None]
  - PYREXIA [None]
